FAERS Safety Report 19544747 (Version 1)
Quarter: 2021Q3

REPORT INFORMATION
  Report Type: Spontaneous
  Country: PK (occurrence: PK)
  Receive Date: 20210713
  Receipt Date: 20210713
  Transmission Date: 20211014
  Serious: Yes (Death, Other)
  Sender: FDA-Public Use
  Company Number: PK-PFIZER INC-2019533243

PATIENT
  Age: 74 Year
  Sex: Female

DRUGS (7)
  1. SUTENT [Suspect]
     Active Substance: SUNITINIB MALATE
     Dosage: 25 MG, 1X/DAY (FOR 2 WEEKS)
  2. SUTENT [Suspect]
     Active Substance: SUNITINIB MALATE
     Dosage: 12.5MG DAILY OR 25MG ALTERNATE DAY (ONE TABLET)
  3. SUTENT [Suspect]
     Active Substance: SUNITINIB MALATE
     Indication: RENAL CELL CARCINOMA
     Dosage: 50 MG, DAILY
  4. SUTENT [Suspect]
     Active Substance: SUNITINIB MALATE
     Dosage: 25 MG, ONCE DAILY
  5. SUTENT [Suspect]
     Active Substance: SUNITINIB MALATE
     Dosage: 37.5 MG, 1X/DAY (FOR 2 WEEKS THEN 2 WEEKS OFF)
  6. SUTENT [Suspect]
     Active Substance: SUNITINIB MALATE
     Dosage: 50 MG, ALTERNATE DAY (EVERY OTHER DAY FOR 4 WEEKS)
     Dates: start: 201911
  7. SUTENT [Suspect]
     Active Substance: SUNITINIB MALATE
     Dosage: 12.5MG DAILY OR 25MG ALTERNATE DAY (ONE TABLET)

REACTIONS (5)
  - Diarrhoea [Recovered/Resolved]
  - Vomiting [Recovered/Resolved]
  - Product use issue [Unknown]
  - Death [Fatal]
  - Off label use [Unknown]

NARRATIVE: CASE EVENT DATE: 2019
